FAERS Safety Report 8930908 (Version 2)
Quarter: 2012Q4

REPORT INFORMATION
  Report Type: 
  Country: US (occurrence: US)
  Receive Date: 20121121
  Receipt Date: 20121212
  Transmission Date: 20130627
  Serious: Yes (Death, Life-Threatening, Hospitalization)
  Sender: FDA-Public Use
  Company Number: US-ASTELLAS-1089773

PATIENT
  Age: 55 Year
  Sex: Male

DRUGS (1)
  1. TARCEVA [Suspect]
     Indication: NON-SMALL CELL LUNG CANCER
     Route: 048
     Dates: start: 200706, end: 200707

REACTIONS (3)
  - Respiratory failure [Fatal]
  - Diarrhoea [Unknown]
  - Haemoptysis [Unknown]
